FAERS Safety Report 9904877 (Version 4)
Quarter: 2015Q2

REPORT INFORMATION
  Report Type: Spontaneous
  Country: US (occurrence: US)
  Receive Date: 20140218
  Receipt Date: 20150506
  Transmission Date: 20150821
  Serious: Yes (Hospitalization)
  Sender: FDA-Public Use
  Company Number: US-BAYER-2014-024990

PATIENT
  Age: 25 Year
  Sex: Female
  Weight: 58.5 kg

DRUGS (5)
  1. MIRENA [Suspect]
     Active Substance: LEVONORGESTREL
     Indication: CONTRACEPTION
     Dosage: 20 MCG/24HR, CONT
     Route: 015
     Dates: start: 20121208, end: 20130508
  2. IBUPROFEN. [Concomitant]
     Active Substance: IBUPROFEN
  3. LEXAPRO [Concomitant]
     Active Substance: ESCITALOPRAM OXALATE
     Dosage: 20 MG, ONCE A DAY
  4. CIPROFLOXACIN. [Concomitant]
     Active Substance: CIPROFLOXACIN
  5. ESCITALOPRAM [Concomitant]
     Active Substance: ESCITALOPRAM OXALATE

REACTIONS (9)
  - Device dislocation [None]
  - Injury [None]
  - Device failure [None]
  - Medical device discomfort [None]
  - Medical device pain [None]
  - Pain [None]
  - Scar [None]
  - Procedural pain [None]
  - Device breakage [None]

NARRATIVE: CASE EVENT DATE: 20130508
